FAERS Safety Report 8003374-8 (Version None)
Quarter: 2011Q4

REPORT INFORMATION
  Report Type: 
  Country: None (occurrence: None)
  Receive Date: 20111222
  Receipt Date: 20111213
  Transmission Date: 20120403
  Serious: Yes (Hospitalization)
  Sender: FDA-Public Use
  Company Number: US-JNJFOC-20111206623

PATIENT
  Sex: Female
  Weight: 58.6 kg

DRUGS (5)
  1. VITAMIN D [Concomitant]
  2. HYOSCYAMINE [Concomitant]
  3. AZITHROMYCIN [Concomitant]
  4. INFLIXIMAB, RECOMBINANT [Suspect]
     Indication: COLITIS ULCERATIVE
     Route: 042
     Dates: start: 20110902
  5. BENTYL [Concomitant]

REACTIONS (1)
  - COLITIS ULCERATIVE [None]
